FAERS Safety Report 4278140-X (Version None)
Quarter: 2004Q1

REPORT INFORMATION
  Report Type: 
  Country: None (occurrence: None)
  Receive Date: 20040121
  Receipt Date: 20040109
  Transmission Date: 20041129
  Serious: Yes (Hospitalization)
  Sender: FDA-Public Use
  Company Number: JP-JNJFOC-20031204888

PATIENT
  Age: 68 Year
  Sex: Female
  Weight: 59 kg

DRUGS (11)
  1. REMICADE [Suspect]
     Indication: RHEUMATOID ARTHRITIS
     Dosage: 3 MG/KG, IN 1 AS NECESSARY, INTRAVENOUS DRIP
     Route: 041
     Dates: start: 20030911, end: 20030911
  2. REMICADE [Suspect]
     Indication: RHEUMATOID ARTHRITIS
     Dosage: 3 MG/KG, IN 1 AS NECESSARY, INTRAVENOUS DRIP
     Route: 041
     Dates: start: 20030925, end: 20030925
  3. REMICADE [Suspect]
     Indication: RHEUMATOID ARTHRITIS
     Dosage: 3 MG/KG, IN 1 AS NECESSARY, INTRAVENOUS DRIP
     Route: 041
     Dates: start: 20031023, end: 20031023
  4. METHOTREXATE (METHOTREXATE) CAPSULES [Suspect]
     Indication: RHEUMATOID ARTHRITIS
     Dosage: 6 MG, IN 1 WEEK, ORAL, 8 MG, IN 1 WEEK, ORAL
     Route: 048
     Dates: start: 20020206, end: 20020510
  5. METHOTREXATE (METHOTREXATE) CAPSULES [Suspect]
     Indication: RHEUMATOID ARTHRITIS
     Dosage: 6 MG, IN 1 WEEK, ORAL, 8 MG, IN 1 WEEK, ORAL
     Route: 048
     Dates: start: 20020511, end: 20030421
  6. METHOTREXATE (METHOTREXATE) CAPSULES [Suspect]
     Indication: RHEUMATOID ARTHRITIS
     Dosage: 6 MG, IN 1 WEEK, ORAL, 8 MG, IN 1 WEEK, ORAL
     Route: 048
     Dates: start: 20030422, end: 20031221
  7. PREDNISOLONE [Suspect]
     Indication: RHEUMATOID ARTHRITIS
     Dosage: 4 MG, IN 1 DAY, ORAL; 6 DOSE(S), IN 1 DAY, ORAL, 5 DOSE (S), IN 1 DAY, ORAL
     Route: 048
     Dates: start: 20020206, end: 20020421
  8. PREDNISOLONE [Suspect]
     Indication: RHEUMATOID ARTHRITIS
     Dosage: 4 MG, IN 1 DAY, ORAL; 6 DOSE(S), IN 1 DAY, ORAL, 5 DOSE (S), IN 1 DAY, ORAL
     Route: 048
     Dates: start: 20020422, end: 20021023
  9. PREDNISOLONE [Suspect]
     Indication: RHEUMATOID ARTHRITIS
     Dosage: 4 MG, IN 1 DAY, ORAL; 6 DOSE(S), IN 1 DAY, ORAL, 5 DOSE (S), IN 1 DAY, ORAL
     Route: 048
     Dates: start: 20021024, end: 20040105
  10. CARFENIL (TABLETS) LOBENZARIT SODIUM [Concomitant]
  11. LOXONIN (TABLETS) LOXOPROFEN SODIUM [Concomitant]

REACTIONS (3)
  - DRUG INEFFECTIVE [None]
  - PNEUMONIA BACTERIAL [None]
  - PNEUMONITIS CRYPTOCOCCAL [None]
